FAERS Safety Report 6198885-4 (Version None)
Quarter: 2009Q2

REPORT INFORMATION
  Report Type: 
  Country: None (occurrence: None)
  Receive Date: 20090519
  Receipt Date: 20090519
  Transmission Date: 20091009
  Serious: Yes (Hospitalization)
  Sender: FDA-Public Use
  Company Number: None

PATIENT
  Age: 52 Year
  Sex: Female
  Weight: 73 kg

DRUGS (1)
  1. BEVACIZUMAB GENENTECH [Suspect]
     Indication: BREAST CANCER METASTATIC
     Dosage: 10 MG/KG EVERY 2 WEEKS IV DRIP
     Route: 041
     Dates: start: 20080403, end: 20090429

REACTIONS (8)
  - AGITATION [None]
  - CONVULSION [None]
  - LEUKOENCEPHALOPATHY [None]
  - MENTAL STATUS CHANGES [None]
  - MYALGIA [None]
  - OROPHARYNGEAL PAIN [None]
  - PHOTOPHOBIA [None]
  - UNRESPONSIVE TO STIMULI [None]
